FAERS Safety Report 19829353 (Version 1)
Quarter: 2021Q3

REPORT INFORMATION
  Report Type: Spontaneous
  Country: US (occurrence: US)
  Receive Date: 20210914
  Receipt Date: 20210914
  Transmission Date: 20211014
  Serious: No
  Sender: FDA-Public Use
  Company Number: US-GLENMARK PHARMACEUTICALS-2021GMK054202

PATIENT

DRUGS (1)
  1. ATOVAQUONE ORAL SUSPENSION USP [750 MG/5 ML] [Suspect]
     Active Substance: ATOVAQUONE
     Indication: PROPHYLAXIS
     Dosage: UNK
     Route: 048
     Dates: start: 2020

REACTIONS (4)
  - Product use in unapproved indication [Unknown]
  - Liquid product physical issue [Unknown]
  - No adverse event [Unknown]
  - Product administration error [Unknown]
